FAERS Safety Report 10587322 (Version 1)
Quarter: 2014Q4

REPORT INFORMATION
  Report Type: Spontaneous
  Country: PL (occurrence: PL)
  Receive Date: 20141117
  Receipt Date: 20141117
  Transmission Date: 20150529
  Serious: Yes (Other)
  Sender: FDA-Public Use
  Company Number: PL-JNJFOC-20141103738

PATIENT

DRUGS (1)
  1. DOXORUBICIN [Suspect]
     Active Substance: DOXORUBICIN
     Indication: NEOPLASM MALIGNANT
     Route: 042

REACTIONS (6)
  - Hypodontia [Unknown]
  - Tooth malformation [Unknown]
  - Vomiting [Unknown]
  - Tooth disorder [Unknown]
  - Enamel anomaly [Unknown]
  - Mucosal inflammation [Unknown]
